FAERS Safety Report 9162677 (Version 3)
Quarter: 2013Q2

REPORT INFORMATION
  Report Type: Spontaneous
  Country: US (occurrence: None)
  Receive Date: 20130312
  Receipt Date: 20130419
  Transmission Date: 20140414
  Serious: Yes (Death)
  Sender: FDA-Public Use
  Company Number: ACO_34682_2013

PATIENT
  Age: 70 Year
  Sex: Female
  Weight: 55.3 kg

DRUGS (6)
  1. AMPYRA (DALFAMPRIDINE) TABLET, 10MG [Suspect]
     Indication: PRODUCT USED FOR UNKNOWN INDICATION
     Dates: start: 201007, end: 201212
  2. BACLOFEN (BACLOFEN) [Concomitant]
  3. NALTREXONE HYDROCHLORIDE [Concomitant]
  4. MULTIVITAMIN (VITAMINS NOS) [Concomitant]
  5. OXYBUTYNIN CHLORIDE ( OXYBUTYNIN HYDRCHLORIDE) [Concomitant]
  6. FOSAMAX 9ALENDRONAT SODIUM) [Concomitant]

REACTIONS (3)
  - Death [None]
  - Multiple sclerosis [None]
  - Disease progression [None]
